FAERS Safety Report 6038553-2 (Version None)
Quarter: 2009Q1

REPORT INFORMATION
  Report Type: 
  Country: None (occurrence: None)
  Receive Date: 20090115
  Receipt Date: 20080903
  Transmission Date: 20090719
  Serious: No
  Sender: FDA-Public Use
  Company Number: US-KINGPHARMUSA00001-K200801034

PATIENT
  Age: 51 Year
  Sex: Male
  Weight: 100.68 kg

DRUGS (1)
  1. EPIPEN [Suspect]
     Indication: ALLERGY TO ARTHROPOD STING
     Dosage: UNK, SINGLE
     Dates: start: 20080829, end: 20080829

REACTIONS (1)
  - LACERATION [None]
